FAERS Safety Report 15891015 (Version 6)
Quarter: 2019Q4

REPORT INFORMATION
  Report Type: Spontaneous
  Country: US (occurrence: US)
  Receive Date: 20190130
  Receipt Date: 20191231
  Transmission Date: 20200122
  Serious: No
  Sender: FDA-Public Use
  Company Number: US-SA-2019SA024243

PATIENT
  Sex: Female

DRUGS (2)
  1. FABRAZYME [Suspect]
     Active Substance: AGALSIDASE BETA
     Indication: FABRY^S DISEASE
     Dosage: 55 MG, QOW
     Route: 041
     Dates: start: 20160321
  2. FABRAZYME [Suspect]
     Active Substance: AGALSIDASE BETA
     Indication: GAUCHER^S DISEASE

REACTIONS (2)
  - Product dose omission [Unknown]
  - Product use in unapproved indication [Unknown]
